FAERS Safety Report 9260626 (Version 1)
Quarter: 2013Q2

REPORT INFORMATION
  Report Type: Spontaneous
  Country: DE (occurrence: DE)
  Receive Date: 20130429
  Receipt Date: 20130429
  Transmission Date: 20140414
  Serious: Yes (Life-Threatening, Hospitalization)
  Sender: FDA-Public Use
  Company Number: DE-BRISTOL-MYERS SQUIBB COMPANY-16970725

PATIENT
  Age: 73 Year
  Sex: Female
  Weight: 90 kg

DRUGS (15)
  1. METFORMIN HCL [Suspect]
     Indication: TYPE 2 DIABETES MELLITUS
     Route: 048
     Dates: start: 2010
  2. ASS 100 [Concomitant]
     Route: 048
  3. FURORESE [Concomitant]
     Dosage: 40MG
     Route: 048
  4. HYDROCHLOROTHIAZIDE [Concomitant]
     Route: 048
  5. CAPTOPRIL [Concomitant]
     Route: 048
  6. GLIMEPIRIDE [Concomitant]
     Route: 048
  7. VITAMIN B [Concomitant]
     Route: 048
  8. ZOPICLONE [Concomitant]
     Route: 048
  9. FENISTIL [Concomitant]
     Route: 048
  10. CEFUROXIME [Concomitant]
  11. RAMIPRIL [Concomitant]
     Route: 048
  12. ACTRAPHANE [Concomitant]
     Dosage: 1DF:15-3-8 IE?30 PENFILL 100 I.E./ML 3ML
     Route: 058
  13. BISOPROLOL [Concomitant]
     Route: 048
  14. NOVALGIN [Concomitant]
     Dosage: 1DF:3*30 TRPF?DROPS
  15. NITRENDIPINE [Concomitant]
     Route: 048

REACTIONS (3)
  - Lactic acidosis [Recovered/Resolved]
  - Hyperkalaemia [Recovered/Resolved]
  - Renal failure acute [Recovered/Resolved]
